FAERS Safety Report 8135586-7 (Version None)
Quarter: 2012Q1

REPORT INFORMATION
  Report Type: 
  Country: None (occurrence: None)
  Receive Date: 20120113
  Receipt Date: 20111111
  Transmission Date: 20120608
  Serious: No
  Sender: FDA-Public Use
  Company Number: AE-2011-003376

PATIENT
  Age: 53 Year
  Sex: Male
  Weight: 92.0802 kg

DRUGS (5)
  1. PEGASYS [Concomitant]
  2. PROZAC [Concomitant]
  3. RIBAVIRIN [Concomitant]
  4. WELLBUTRIN [Concomitant]
  5. INCIVEK [Suspect]
     Dosage: 2250 MG (750 MG, 1 IN 8 HR), ORAL
     Route: 048
     Dates: start: 20111027

REACTIONS (3)
  - DEPRESSED MOOD [None]
  - FATIGUE [None]
  - NAUSEA [None]
